FAERS Safety Report 9771863 (Version 2)
Quarter: 2014Q1

REPORT INFORMATION
  Report Type: Report from Study
  Country: AU (occurrence: AU)
  Receive Date: 20131219
  Receipt Date: 20140102
  Transmission Date: 20141002
  Serious: Yes (Hospitalization)
  Sender: FDA-Public Use
  Company Number: AU-ROCHE-1318253

PATIENT
  Age: 82 Year
  Sex: Female
  Weight: 54 kg

DRUGS (9)
  1. RITUXIMAB [Suspect]
     Indication: B-CELL LYMPHOMA
     Dosage: LAST VOLUME PRIOR TO SAE: 603.75 ML?DATE OF LAST DOSE CONCENTRATION (1 MG/ML) PRIOR TO SAE: 06/NOV/2
     Route: 042
     Dates: start: 20130618
  2. BENDAMUSTINE [Suspect]
     Indication: B-CELL LYMPHOMA
     Dosage: DATE OF MOST RECENT DOSE (105 MG) PRIOR TO SAE: 14/NOV/2013.
     Route: 042
     Dates: start: 20130618
  3. AMLODIPINE [Concomitant]
     Indication: HYPERTENSION
  4. KARVEA [Concomitant]
     Indication: HYPERTENSION
  5. METFORMIN [Concomitant]
     Indication: TYPE 2 DIABETES MELLITUS
  6. ACTONEL COMBI (AUSTRALIA) [Concomitant]
     Indication: OSTEOPOROSIS
  7. ROSUVASTATIN [Concomitant]
     Indication: BLOOD CHOLESTEROL INCREASED
  8. GRANISETRON [Concomitant]
     Indication: VOMITING
     Route: 065
     Dates: start: 20130618
  9. PARACETAMOL [Concomitant]
     Indication: PREMEDICATION
     Route: 065
     Dates: start: 20130618

REACTIONS (2)
  - Dizziness [Recovering/Resolving]
  - Back pain [Recovering/Resolving]
